FAERS Safety Report 6968517-3 (Version None)
Quarter: 2010Q3

REPORT INFORMATION
  Report Type: 
  Country: None (occurrence: None)
  Receive Date: 20100907
  Receipt Date: 20100826
  Transmission Date: 20110219
  Serious: Yes (Hospitalization)
  Sender: FDA-Public Use
  Company Number: DE-ROCHE-724781

PATIENT
  Sex: Male
  Weight: 76 kg

DRUGS (3)
  1. PEGINTERFERON ALFA-2A [Suspect]
     Route: 058
     Dates: start: 20100209, end: 20100822
  2. PEGINTERFERON ALFA-2A [Suspect]
     Route: 058
     Dates: start: 20100823
  3. RIBAVIRIN [Concomitant]
     Route: 048
     Dates: start: 20100209

REACTIONS (1)
  - SYNCOPE [None]
